FAERS Safety Report 19820416 (Version 1)
Quarter: 2021Q3

REPORT INFORMATION
  Report Type: Spontaneous
  Country: US (occurrence: US)
  Receive Date: 20210910
  Receipt Date: 20210910
  Transmission Date: 20211014
  Serious: Yes (Other)
  Sender: FDA-Public Use
  Company Number: None

PATIENT
  Age: 75 Year
  Sex: Male

DRUGS (9)
  1. CETIRIZINE [Concomitant]
     Active Substance: CETIRIZINE HYDROCHLORIDE
     Dates: start: 20190405
  2. MONTELUKAST 4MG [Concomitant]
     Active Substance: MONTELUKAST SODIUM
     Dates: start: 20210222
  3. BENAZEPRIL 5MG [Concomitant]
     Dates: start: 20190405
  4. METOPROLOL ER SUCCINATE 25MG [Concomitant]
     Dates: start: 20210222
  5. POTASSIUM CHOLRIDE ER 8 MQ [Concomitant]
     Dates: start: 20210322
  6. THALOMID [Suspect]
     Active Substance: THALIDOMIDE
     Indication: PLASMA CELL MYELOMA
     Route: 048
     Dates: start: 20210330, end: 20210904
  7. NIACIN 500MG [Concomitant]
     Dates: start: 20210119
  8. CRESTOR [Concomitant]
     Active Substance: ROSUVASTATIN CALCIUM
     Dates: start: 20210119
  9. ACYCLOVIR 400MG [Concomitant]
     Active Substance: ACYCLOVIR
     Dates: start: 20210222

REACTIONS (1)
  - Drug ineffective [None]

NARRATIVE: CASE EVENT DATE: 20210904
